FAERS Safety Report 9605893 (Version 1)
Quarter: 2013Q4

REPORT INFORMATION
  Report Type: Spontaneous
  Country: NO (occurrence: NO)
  Receive Date: 20131008
  Receipt Date: 20131008
  Transmission Date: 20140711
  Serious: Yes (Other)
  Sender: FDA-Public Use
  Company Number: CHPA2013NO015229

PATIENT
  Age: 28 Year
  Sex: Male

DRUGS (1)
  1. OTRIVIN [Suspect]
     Indication: NASOPHARYNGITIS
     Dosage: UNK, UNK

REACTIONS (3)
  - Drug dependence [Unknown]
  - Pain [Unknown]
  - Incorrect drug administration duration [Unknown]
